FAERS Safety Report 13640605 (Version 1)
Quarter: 2017Q2

REPORT INFORMATION
  Report Type: Report from Study
  Country: None (occurrence: PE)
  Receive Date: 20170611
  Receipt Date: 20170611
  Transmission Date: 20170830
  Serious: Yes (Other)
  Sender: FDA-Public Use
  Company Number: PE-ABBVIE-17K-127-1969498-00

PATIENT
  Age: 28 Year
  Sex: Female
  Weight: 80 kg

DRUGS (4)
  1. METHOTREXATE. [Concomitant]
     Active Substance: METHOTREXATE
     Indication: PRODUCT USED FOR UNKNOWN INDICATION
  2. NAPROXEN. [Concomitant]
     Active Substance: NAPROXEN
     Indication: PRODUCT USED FOR UNKNOWN INDICATION
  3. PREDNISONE. [Concomitant]
     Active Substance: PREDNISONE
     Indication: PRODUCT USED FOR UNKNOWN INDICATION
  4. HUMIRA [Suspect]
     Active Substance: ADALIMUMAB
     Indication: RHEUMATOID ARTHRITIS
     Route: 058
     Dates: start: 20160211, end: 20170429

REACTIONS (2)
  - Pain in extremity [Recovered/Resolved]
  - Meniscus injury [Recovered/Resolved]

NARRATIVE: CASE EVENT DATE: 20170430
